FAERS Safety Report 5654418-X (Version None)
Quarter: 2008Q1

REPORT INFORMATION
  Report Type: 
  Country: None (occurrence: None)
  Receive Date: 20080305
  Receipt Date: 20080221
  Transmission Date: 20080703
  Serious: No
  Sender: FDA-Public Use
  Company Number: 2007BI003034

PATIENT
  Age: 44 Year
  Sex: Female

DRUGS (4)
  1. TYSABRI [Suspect]
     Indication: MULTIPLE SCLEROSIS
     Dosage: IV
     Route: 042
     Dates: start: 20061213
  2. COUMADIN [Concomitant]
  3. REQUIP [Concomitant]
  4. MODAFINIL [Concomitant]

REACTIONS (5)
  - DEEP VEIN THROMBOSIS [None]
  - FATIGUE [None]
  - INSOMNIA [None]
  - RESTLESS LEGS SYNDROME [None]
  - WEIGHT DECREASED [None]
